FAERS Safety Report 7146166-4 (Version None)
Quarter: 2010Q4

REPORT INFORMATION
  Report Type: 
  Country: None (occurrence: None)
  Receive Date: 20101208
  Receipt Date: 20101130
  Transmission Date: 20110411
  Serious: Yes (Congenital Anomaly)
  Sender: FDA-Public Use
  Company Number: US-US-EMD SERONO, INC.-7029924

PATIENT
  Sex: Female
  Weight: 3 kg

DRUGS (1)
  1. REBIF [Suspect]
     Route: 064
     Dates: end: 20091201

REACTIONS (3)
  - CONGENITAL CYSTIC KIDNEY DISEASE [None]
  - DRUG EXPOSURE DURING PREGNANCY [None]
  - INTESTINAL PERFORATION [None]
